FAERS Safety Report 24587238 (Version 1)
Quarter: 2024Q4

REPORT INFORMATION
  Report Type: Spontaneous
  Country: US (occurrence: US)
  Receive Date: 20241107
  Receipt Date: 20241107
  Transmission Date: 20250114
  Serious: No
  Sender: ABBVIE
  Company Number: US-ABBVIE-5987337

PATIENT
  Sex: Female

DRUGS (2)
  1. ELAHERE [Suspect]
     Active Substance: MIRVETUXIMAB SORAVTANSINE-GYNX
     Indication: Ovarian cancer
     Route: 042
  2. PREDNISONE [Suspect]
     Active Substance: PREDNISONE
     Indication: Product used for unknown indication
     Dosage: DROP
     Route: 065

REACTIONS (10)
  - Alopecia [Unknown]
  - Eye disorder [Unknown]
  - Vision blurred [Unknown]
  - Photophobia [Unknown]
  - Eye pruritus [Unknown]
  - Eye irritation [Unknown]
  - Neuropathy peripheral [Unknown]
  - Drug ineffective [Unknown]
  - Lacrimation increased [Unknown]
  - Lymphadenopathy [Recovered/Resolved]
